FAERS Safety Report 20063259 (Version 1)
Quarter: 2021Q4

REPORT INFORMATION
  Report Type: Spontaneous
  Country: US (occurrence: US)
  Receive Date: 20211112
  Receipt Date: 20211112
  Transmission Date: 20220303
  Serious: Yes (Hospitalization)
  Sender: FDA-Public Use
  Company Number: US-BIOVITRUM-2021US10561

PATIENT
  Sex: Female

DRUGS (1)
  1. SYNAGIS [Suspect]
     Active Substance: PALIVIZUMAB
     Indication: Pulmonary valve stenosis congenital
     Dosage: SYNAGIS SOLN (100MG/ML)
     Route: 030
     Dates: start: 20211004

REACTIONS (1)
  - Cardiac disorder [Unknown]
